FAERS Safety Report 10481845 (Version 1)
Quarter: 2014Q3

REPORT INFORMATION
  Report Type: Spontaneous
  Country: US (occurrence: None)
  Receive Date: 20140908
  Receipt Date: 20140908
  Transmission Date: 20150326
  Serious: Yes (Hospitalization)
  Sender: FDA-Public Use
  Company Number: 396423

PATIENT
  Age: 69 Year
  Sex: Male
  Weight: 72.6 kg

DRUGS (9)
  1. BABY ASPIRIN (ACETYLSALICYLIC ACID) [Concomitant]
     Active Substance: ASPIRIN
  2. INVOKANA [Concomitant]
     Active Substance: CANAGLIFLOZIN
  3. ENALAPRIL [Concomitant]
     Active Substance: ENALAPRIL
  4. BETHANECHOL [Concomitant]
     Active Substance: BETHANECHOL
  5. VICTOZA [Suspect]
     Active Substance: LIRAGLUTIDE
     Indication: TYPE 2 DIABETES MELLITUS
     Route: 058
     Dates: start: 20131216, end: 20131218
  6. VITAMIN D /00107901/ (ERGOCALCIFEROL) [Concomitant]
  7. NOVOLOG [Concomitant]
     Active Substance: INSULIN ASPART
  8. ZETIA [Concomitant]
     Active Substance: EZETIMIBE
  9. TAMSULOSIN [Concomitant]
     Active Substance: TAMSULOSIN

REACTIONS (3)
  - Dehydration [None]
  - Vomiting [None]
  - Nausea [None]

NARRATIVE: CASE EVENT DATE: 20131218
